FAERS Safety Report 8787792 (Version 2)
Quarter: 2012Q4

REPORT INFORMATION
  Report Type: 
  Country: US (occurrence: US)
  Receive Date: 20120914
  Receipt Date: 20121120
  Transmission Date: 20130627
  Serious: Yes (Death)
  Sender: FDA-Public Use
  Company Number: US-ROCHE-1127659

PATIENT
  Sex: Male

DRUGS (2)
  1. AVASTIN [Suspect]
     Indication: LUNG NEOPLASM MALIGNANT
     Route: 042
     Dates: start: 20080509, end: 20110208
  2. AVASTIN [Suspect]
     Indication: COLON CANCER METASTATIC

REACTIONS (2)
  - Death [Fatal]
  - Drug ineffective [Unknown]
